FAERS Safety Report 19911039 (Version 3)
Quarter: 2022Q2

REPORT INFORMATION
  Report Type: Report from Study
  Country: DE (occurrence: DE)
  Receive Date: 20211004
  Receipt Date: 20220523
  Transmission Date: 20220721
  Serious: Yes (Other)
  Sender: FDA-Public Use
  Company Number: DE-CELLTRION INC.-2019DE024892

PATIENT

DRUGS (9)
  1. RITUXIMAB [Suspect]
     Active Substance: RITUXIMAB
     Indication: Relapsing-remitting multiple sclerosis
     Dosage: 250 MG, DOSAGE ACCORDING TO BODY WEIGHT
     Route: 042
     Dates: start: 20190510
  2. RITUXIMAB [Suspect]
     Active Substance: RITUXIMAB
     Dosage: 250 MG, DECREASED DOSE, JUN/2021
     Route: 042
     Dates: start: 202012
  3. RITUXIMAB [Suspect]
     Active Substance: RITUXIMAB
     Dosage: 250 MG, DOSAGE ACCORDING TO BODY WEIGHT
     Route: 042
     Dates: start: 202106
  4. COMIRNATY [Suspect]
     Active Substance: TOZINAMERAN
     Indication: COVID-19
     Dosage: 3RD VACCINE ON 02/NOV/2021
     Route: 065
     Dates: start: 202104
  5. ESCITALOPRAM [Concomitant]
     Active Substance: ESCITALOPRAM OXALATE
     Dosage: 20 MG
  6. CAFFEINE [Concomitant]
     Active Substance: CAFFEINE
  7. DESLORATADINE [Concomitant]
     Active Substance: DESLORATADINE
     Dosage: 5 MG
  8. METOPROLOL [Concomitant]
     Active Substance: METOPROLOL
     Dosage: UNK
  9. VALDOXAN [Concomitant]
     Active Substance: AGOMELATINE
     Dosage: 25 MG

REACTIONS (16)
  - Immunodeficiency [Not Recovered/Not Resolved]
  - Iron deficiency [Recovered/Resolved]
  - Joint instability [Not Recovered/Not Resolved]
  - Limb discomfort [Not Recovered/Not Resolved]
  - Perioral dermatitis [Recovering/Resolving]
  - Ill-defined disorder [Not Recovered/Not Resolved]
  - Migraine with aura [Recovered/Resolved]
  - Alopecia [Not Recovered/Not Resolved]
  - Skin disorder [Recovered/Resolved]
  - Fatigue [Not Recovered/Not Resolved]
  - Headache [Recovered/Resolved]
  - Pain in extremity [Recovered/Resolved]
  - Pain in extremity [Unknown]
  - Arthralgia [Recovered/Resolved]
  - Tremor [Unknown]
  - Off label use [Unknown]

NARRATIVE: CASE EVENT DATE: 20190601
